FAERS Safety Report 17601830 (Version 1)
Quarter: 2020Q1

REPORT INFORMATION
  Report Type: Spontaneous
  Country: US (occurrence: US)
  Receive Date: 20200331
  Receipt Date: 20200331
  Transmission Date: 20200409
  Serious: No
  Sender: FDA-Public Use
  Company Number: US-ASTRAZENECA-2020SE41204

PATIENT
  Sex: Female
  Weight: 86.6 kg

DRUGS (7)
  1. ACARBOSE. [Concomitant]
     Active Substance: ACARBOSE
  2. CYCLOBENZAPRINE. [Concomitant]
     Active Substance: CYCLOBENZAPRINE
     Indication: PAIN
     Dosage: 10.0MG EVERY 8 - 12 HOURS
  3. POTASSIUM [Concomitant]
     Active Substance: POTASSIUM
     Dosage: 10.0MEQ AS REQUIRED
  4. FARXIGA [Suspect]
     Active Substance: DAPAGLIFLOZIN PROPANEDIOL
     Indication: DIABETES MELLITUS
     Route: 048
     Dates: start: 2017
  5. LISINOPRIL. [Suspect]
     Active Substance: LISINOPRIL
     Route: 048
  6. ATORVASTATIN [Concomitant]
     Active Substance: ATORVASTATIN
     Indication: BLOOD CHOLESTEROL
  7. FUROSEMIDE. [Concomitant]
     Active Substance: FUROSEMIDE
     Dosage: 20.0MG AS REQUIRED

REACTIONS (3)
  - Wrong technique in product usage process [Unknown]
  - Weight decreased [Unknown]
  - Balance disorder [Unknown]
